FAERS Safety Report 12296523 (Version 5)
Quarter: 2016Q4

REPORT INFORMATION
  Report Type: Spontaneous
  Country: US (occurrence: US)
  Receive Date: 20160422
  Receipt Date: 20161019
  Transmission Date: 20170207
  Serious: No
  Sender: FDA-Public Use
  Company Number: US-SHIRE-US201604493

PATIENT
  Age: 5 Year
  Sex: Male
  Weight: 25.4 kg

DRUGS (5)
  1. MOTRIN [Concomitant]
     Active Substance: IBUPROFEN
     Indication: PREMEDICATION
     Dosage: 200 MG, UNKNOWN
     Route: 048
     Dates: end: 20160423
  2. CERDELGA [Concomitant]
     Active Substance: ELIGLUSTAT
     Indication: GAUCHER^S DISEASE
     Dosage: 42 MG, 2X/DAY:BID
     Route: 048
     Dates: start: 20160304
  3. VPRIV [Suspect]
     Active Substance: VELAGLUCERASE ALFA
     Indication: GAUCHER^S DISEASE
     Dosage: 1600 IU, 1X/2WKS
     Route: 041
     Dates: start: 20140930, end: 20160423
  4. ZYRTEC [Concomitant]
     Active Substance: CETIRIZINE HYDROCHLORIDE
     Indication: PREMEDICATION
     Dosage: 5 MG, UNKNOWN
     Route: 048
     Dates: end: 20160423
  5. TYLENOL [Concomitant]
     Active Substance: ACETAMINOPHEN
     Indication: PREMEDICATION
     Dosage: 320 MG, UNKNOWN
     Route: 048
     Dates: end: 20160423

REACTIONS (1)
  - Neutralising antibodies positive [Not Recovered/Not Resolved]

NARRATIVE: CASE EVENT DATE: 20160120
